FAERS Safety Report 4830386-5 (Version None)
Quarter: 2005Q4

REPORT INFORMATION
  Report Type: 
  Country: None (occurrence: None)
  Receive Date: 20051117
  Receipt Date: 20051017
  Transmission Date: 20060501
  Serious: Yes (Hospitalization)
  Sender: FDA-Public Use
  Company Number: FR-SANOFI-SYNTHELABO-A02200502740

PATIENT
  Sex: Male
  Weight: 62 kg

DRUGS (5)
  1. PLAVIX [Suspect]
     Indication: STENT PLACEMENT
     Route: 048
     Dates: start: 20050414, end: 20051006
  2. ASPEGIC 325 [Concomitant]
     Indication: STENT PLACEMENT
     Route: 048
     Dates: start: 20050401, end: 20051001
  3. ZESTRIL [Concomitant]
     Indication: CORONARY ARTERY INSUFFICIENCY
     Route: 048
  4. IKOREL [Concomitant]
     Indication: CORONARY ARTERY INSUFFICIENCY
     Route: 048
  5. NITRODERM [Concomitant]
     Indication: CORONARY ARTERY INSUFFICIENCY
     Route: 062

REACTIONS (8)
  - ANAEMIA [None]
  - COLITIS ULCERATIVE [None]
  - CROHN'S DISEASE [None]
  - DIARRHOEA HAEMORRHAGIC [None]
  - HAEMOGLOBIN DECREASED [None]
  - PYREXIA [None]
  - RECTAL HAEMORRHAGE [None]
  - STOMATITIS [None]
